FAERS Safety Report 7947998-2 (Version None)
Quarter: 2011Q4

REPORT INFORMATION
  Report Type: 
  Country: None (occurrence: None)
  Receive Date: 20111123
  Receipt Date: 20111115
  Transmission Date: 20120403
  Serious: Yes (Other)
  Sender: FDA-Public Use
  Company Number: ADR-2011-11569

PATIENT
  Age: 23 Year
  Sex: Female

DRUGS (1)
  1. LIORESAL [Suspect]
     Indication: MUSCLE SPASTICITY

REACTIONS (5)
  - PRURITUS [None]
  - STAPHYLOCOCCUS TEST POSITIVE [None]
  - IMPLANT SITE INFECTION [None]
  - DRUG WITHDRAWAL SYNDROME [None]
  - MUSCLE SPASTICITY [None]
